FAERS Safety Report 8816775 (Version 1)
Quarter: 2012Q4

REPORT INFORMATION
  Report Type: Spontaneous
  Country: US (occurrence: None)
  Receive Date: 20121001
  Receipt Date: 20121001
  Transmission Date: 20130627
  Serious: Yes (Hospitalization)
  Sender: FDA-Public Use
  Company Number: UTC-023043

PATIENT
  Age: 55 Year
  Sex: Female
  Weight: 60.91 kg

DRUGS (5)
  1. TYVASO (6 MICROGRAM, AEROSOL FOR INHALATION) (TREPROSTINIL SODIUM) [Suspect]
     Indication: PRIMARY PULMONARY HYPERTENSION
     Dosage: 18-54 Micrograms (4 in 1 D), Inhalation
     Route: 055
     Dates: start: 20120906
  2. LETAIRIS (AMBRISENTAN) [Concomitant]
  3. EPOPROSTENOL [Concomitant]
  4. ASA (ACETYLSALICYLIC ACID) [Concomitant]
  5. VIAGRA (SILDENAFIL) [Concomitant]

REACTIONS (2)
  - Cardiac failure [None]
  - Condition aggravated [None]
